FAERS Safety Report 13024314 (Version 1)
Quarter: 2016Q4

REPORT INFORMATION
  Report Type: Spontaneous
  Country: CA (occurrence: CA)
  Receive Date: 20161213
  Receipt Date: 20161213
  Transmission Date: 20170207
  Serious: Yes (Death)
  Sender: FDA-Public Use
  Company Number: CA-HLSUS-2016-CA-000733

PATIENT
  Sex: 0

DRUGS (1)
  1. CLOZARIL [Suspect]
     Active Substance: CLOZAPINE

REACTIONS (2)
  - Infection [Fatal]
  - Lung neoplasm malignant [Unknown]
